FAERS Safety Report 4352604-2 (Version None)
Quarter: 2004Q2

REPORT INFORMATION
  Report Type: 
  Country: None (occurrence: None)
  Receive Date: 20040503
  Receipt Date: 20040503
  Transmission Date: 20050107
  Serious: Yes (Hospitalization)
  Sender: FDA-Public Use
  Company Number: None

PATIENT
  Sex: Male
  Weight: 195.6 kg

DRUGS (11)
  1. DOCETAXEL 80 MG/2 ML AVENTIS [Suspect]
     Indication: PANCREATIC CARCINOMA
     Dosage: 65 MG/M2 Q 21-DAYS IV
     Route: 042
     Dates: start: 20040421, end: 20040421
  2. IRINOTECAN 100 MG/5 ML PHARMACIA AND UPJOHN [Suspect]
     Indication: PANCREATIC CARCINOMA
     Dosage: 160 MG /M2 Q 21 DAYS IV
     Route: 042
     Dates: start: 20040421, end: 20040421
  3. KLOR-CON [Concomitant]
  4. TRIAMETEREN HCTZ [Concomitant]
  5. MINOXIDIL [Concomitant]
  6. TERAZOSIN HCL [Concomitant]
  7. GLIPIZIDE [Concomitant]
  8. DIOVAN [Concomitant]
  9. PHENERGAN [Concomitant]
  10. ATIVAN [Concomitant]
  11. PANCREATIC ENZYMES [Concomitant]

REACTIONS (4)
  - FEBRILE NEUTROPENIA [None]
  - INFECTION [None]
  - LEUKOPENIA [None]
  - MALAISE [None]
